FAERS Safety Report 8187989-2 (Version None)
Quarter: 2012Q1

REPORT INFORMATION
  Report Type: 
  Country: None (occurrence: None)
  Receive Date: 20120221
  Receipt Date: 20110410
  Transmission Date: 20120608
  Serious: Yes (Other)
  Sender: FDA-Public Use
  Company Number: PHEH2011US04327

PATIENT
  Sex: Male

DRUGS (1)
  1. TOBI [Suspect]
     Indication: ASTHMA
     Dosage: 300 MG, BID, INHALATION
     Route: 055
     Dates: start: 20081108

REACTIONS (1)
  - ASTHMA [None]
